FAERS Safety Report 6638724-8 (Version None)
Quarter: 2010Q1

REPORT INFORMATION
  Report Type: 
  Country: None (occurrence: None)
  Receive Date: 20100312
  Receipt Date: 20100304
  Transmission Date: 20100710
  Serious: Yes (Other)
  Sender: FDA-Public Use
  Company Number: A-US2009-28985

PATIENT
  Age: 31 Year
  Sex: Male

DRUGS (2)
  1. TRACLEER [Suspect]
     Indication: PULMONARY ARTERIAL HYPERTENSION
     Dosage: 125 MG, BID, 62.5 MG, BID, ORAL
     Route: 048
     Dates: start: 20061030, end: 20061130
  2. TRACLEER [Suspect]
     Indication: PULMONARY ARTERIAL HYPERTENSION
     Dosage: 125 MG, BID, 62.5 MG, BID, ORAL
     Route: 048
     Dates: start: 20061201

REACTIONS (5)
  - CARCINOID TUMOUR [None]
  - CHOLESTASIS [None]
  - HEPATIC CONGESTION [None]
  - HEPATIC LESION [None]
  - PULMONARY ARTERIAL HYPERTENSION [None]
